FAERS Safety Report 18756842 (Version 8)
Quarter: 2023Q2

REPORT INFORMATION
  Report Type: Spontaneous
  Country: US (occurrence: US)
  Receive Date: 20210119
  Receipt Date: 20230602
  Transmission Date: 20230721
  Serious: No
  Sender: FDA-Public Use
  Company Number: US-PFIZER INC-2020477348

PATIENT
  Age: 84 Year
  Sex: Male

DRUGS (4)
  1. EUCRISA [Suspect]
     Active Substance: CRISABOROLE
     Indication: Pruritus
     Dosage: UNK, DAILY (APPLY TO AFFECTED AREAS ON ARMS DAILY WHEN FLARING)
     Route: 061
  2. EUCRISA [Suspect]
     Active Substance: CRISABOROLE
     Indication: Eczema
     Dosage: UNK, 2X/DAY  (APPLY TO AFFECTED AREAS TWICE DAILY AS NEEDED)
     Route: 061
  3. EUCRISA [Suspect]
     Active Substance: CRISABOROLE
     Indication: Dermatitis contact
     Dosage: UNK, 2X/DAY (APPLY TO AFFECTED AREAS ON FACE TWICE DAILY AS NEEDED)
     Route: 061
  4. ATORVASTATIN [Concomitant]
     Active Substance: ATORVASTATIN
     Indication: Arterial disorder
     Dosage: UNK

REACTIONS (1)
  - Feeling abnormal [Unknown]
